FAERS Safety Report 5495011-1 (Version None)
Quarter: 2007Q4

REPORT INFORMATION
  Report Type: 
  Country: None (occurrence: None)
  Receive Date: 20071024
  Receipt Date: 20071018
  Transmission Date: 20080405
  Serious: Yes (Hospitalization)
  Sender: FDA-Public Use
  Company Number: FR-SHR-FR-2007-035391

PATIENT
  Age: 43 Year
  Sex: Female
  Weight: 64 kg

DRUGS (2)
  1. MIRENA [Suspect]
     Indication: CONTRACEPTION
     Dosage: 20 A?G/DAY, CONT
     Route: 015
     Dates: start: 20041028
  2. LEVOTHYROX [Concomitant]
     Dosage: 100 A?G, 1X/DAY
     Route: 048

REACTIONS (3)
  - HEMIPLEGIA [None]
  - MIGRAINE WITH AURA [None]
  - TRANSIENT ISCHAEMIC ATTACK [None]
